FAERS Safety Report 7106275-2 (Version None)
Quarter: 2010Q4

REPORT INFORMATION
  Report Type: 
  Country: None (occurrence: None)
  Receive Date: 20101116
  Receipt Date: 20101110
  Transmission Date: 20110411
  Serious: Yes (Other)
  Sender: FDA-Public Use
  Company Number: AU-PFIZER INC-2010146271

PATIENT
  Sex: Male

DRUGS (1)
  1. LIPITOR [Suspect]
     Dosage: UNK
     Dates: end: 20030101

REACTIONS (5)
  - BACK PAIN [None]
  - CEREBROVASCULAR ACCIDENT [None]
  - FALL [None]
  - PAIN IN EXTREMITY [None]
  - VASCULAR GRAFT [None]
